FAERS Safety Report 4888041-1 (Version None)
Quarter: 2006Q1

REPORT INFORMATION
  Report Type: 
  Country: None (occurrence: None)
  Receive Date: 20060123
  Receipt Date: 20051026
  Transmission Date: 20060701
  Serious: Yes (Hospitalization)
  Sender: FDA-Public Use
  Company Number: US-MERCK-0510USA09493

PATIENT
  Age: 81 Year
  Sex: Male
  Weight: 91 kg

DRUGS (8)
  1. VIOXX [Suspect]
     Indication: ARTHRITIS
     Route: 048
     Dates: start: 20010829, end: 20041001
  2. VIOXX [Suspect]
     Indication: SPINAL COLUMN STENOSIS
     Route: 048
     Dates: start: 20010829, end: 20041001
  3. ASPIRIN [Concomitant]
     Route: 065
     Dates: start: 19950101
  4. FLOMAX (MORNIFLUMATE) [Concomitant]
     Indication: PROSTATISM
     Route: 065
  5. ZOCOR [Concomitant]
     Indication: BLOOD CHOLESTEROL
     Route: 065
     Dates: start: 20000101
  6. ATENOLOL [Concomitant]
     Indication: BLOOD PRESSURE
     Route: 065
  7. OMEGA-3 [Concomitant]
     Route: 065
  8. TYLENOL (CAPLET) [Concomitant]
     Indication: PAIN
     Route: 065
     Dates: start: 19900101

REACTIONS (11)
  - ACUTE CORONARY SYNDROME [None]
  - ACUTE MYOCARDIAL INFARCTION [None]
  - CARPAL TUNNEL DECOMPRESSION [None]
  - CHEST DISCOMFORT [None]
  - DIZZINESS POSTURAL [None]
  - HEADACHE [None]
  - HYPOTENSION [None]
  - JOINT INJECTION [None]
  - LUMBAR SPINAL STENOSIS [None]
  - SCRATCH [None]
  - URINARY RETENTION [None]
